FAERS Safety Report 20582805 (Version 2)
Quarter: 2022Q2

REPORT INFORMATION
  Report Type: Spontaneous
  Country: US (occurrence: US)
  Receive Date: 20220311
  Receipt Date: 20220526
  Transmission Date: 20220721
  Serious: Yes (Other)
  Sender: FDA-Public Use
  Company Number: US-JNJFOC-20220312196

PATIENT
  Sex: Male

DRUGS (3)
  1. REMICADE [Suspect]
     Active Substance: INFLIXIMAB
     Indication: Psoriatic arthropathy
     Dosage: SINCE EARLY 2000S, IN EXCESS OF 15 YEARS
     Route: 042
     Dates: end: 202109
  2. REMICADE [Suspect]
     Active Substance: INFLIXIMAB
     Indication: Intervertebral disc degeneration
  3. REMICADE [Suspect]
     Active Substance: INFLIXIMAB
     Indication: Spinal disorder

REACTIONS (4)
  - Psoriatic arthropathy [Unknown]
  - Adverse drug reaction [Unknown]
  - Off label use [Unknown]
  - Inappropriate schedule of product administration [Unknown]
